FAERS Safety Report 24038612 (Version 7)
Quarter: 2024Q4

REPORT INFORMATION
  Report Type: Spontaneous
  Country: EC (occurrence: EC)
  Receive Date: 20240702
  Receipt Date: 20241212
  Transmission Date: 20250114
  Serious: Yes (Disabling, Other)
  Sender: ROCHE
  Company Number: EC-ROCHE-10000007636

PATIENT

DRUGS (2)
  1. AVASTIN [Suspect]
     Active Substance: BEVACIZUMAB
     Indication: Retinal disorder
     Dosage: 100MG/4ML..?1 VIAL OF 4 ML.?3 SESSIONS OF APPLICATIONS
     Route: 050
  2. AVASTIN [Suspect]
     Active Substance: BEVACIZUMAB
     Route: 050

REACTIONS (6)
  - Endophthalmitis [Unknown]
  - Product counterfeit [Unknown]
  - Off label use [Unknown]
  - Blindness [Unknown]
  - Infection [Unknown]
  - Pain [Unknown]

NARRATIVE: CASE EVENT DATE: 20240501
